FAERS Safety Report 20933138 (Version 1)
Quarter: 2022Q2

REPORT INFORMATION
  Report Type: Spontaneous
  Country: ES (occurrence: ES)
  Receive Date: 20220608
  Receipt Date: 20220608
  Transmission Date: 20220721
  Serious: Yes (Other)
  Sender: FDA-Public Use
  Company Number: ES-TAKEDA-2022TUS037834

PATIENT
  Age: 89 Year
  Sex: Male

DRUGS (12)
  1. FEBUXOSTAT [Suspect]
     Active Substance: FEBUXOSTAT
     Indication: Hyperuricaemia
     Dosage: 80 MILLIGRAM, 4/WEEK
     Route: 048
     Dates: start: 20220428, end: 20220512
  2. ACETAMINOPHEN [Concomitant]
     Active Substance: ACETAMINOPHEN
     Indication: Analgesic therapy
     Dosage: 1 MILLIGRAM
     Route: 048
     Dates: start: 20131017
  3. SPIRIVA RESPIMAT [Concomitant]
     Active Substance: TIOTROPIUM BROMIDE
     Indication: Respiratory failure
     Dosage: 2.5 MICROGRAM
     Route: 055
     Dates: start: 20190510
  4. CYANOCOBALAMIN [Concomitant]
     Active Substance: CYANOCOBALAMIN
     Dosage: 1.000 MICROGRAM
     Route: 065
  5. CALCIFEDIOL [Concomitant]
     Active Substance: CALCIFEDIOL
     Indication: Vitamin D decreased
     Dosage: 0.266 MILLIGRAM
     Route: 048
     Dates: start: 20220427
  6. OMEPRAZOLE [Concomitant]
     Active Substance: OMEPRAZOLE
     Indication: Gastroduodenal ulcer
     Dosage: 20 MILLIGRAM
     Route: 048
     Dates: start: 20170110
  7. DUTASTERIDE\TAMSULOSIN HYDROCHLORIDE [Concomitant]
     Active Substance: DUTASTERIDE\TAMSULOSIN HYDROCHLORIDE
     Indication: Benign prostatic hyperplasia
     Dosage: UNK
     Route: 048
     Dates: start: 20210426
  8. ATORVASTATIN CALCIUM [Concomitant]
     Active Substance: ATORVASTATIN CALCIUM
     Indication: Hyperlipidaemia
     Dosage: 40 MILLIGRAM
     Route: 048
     Dates: start: 20170110
  9. BISOPROLOL [Concomitant]
     Active Substance: BISOPROLOL
     Indication: Cardiac failure
     Dosage: 2.5 MILLIGRAM
     Route: 048
     Dates: start: 20131227
  10. SINTROM [Concomitant]
     Active Substance: ACENOCOUMAROL
     Indication: Cardiac failure
     Dosage: 4 MILLIGRAM
     Route: 048
     Dates: start: 20090713
  11. FUROSEMIDE [Concomitant]
     Active Substance: FUROSEMIDE
     Indication: Chronic kidney disease
     Dosage: 40 MILLIGRAM
     Route: 048
     Dates: start: 20170110
  12. URSOBILANE [Concomitant]
     Indication: Biliary cirrhosis
     Dosage: 300 MILLIGRAM
     Route: 048
     Dates: start: 20220428

REACTIONS (2)
  - Actinic keratosis [Recovering/Resolving]
  - Product use issue [Recovered/Resolved]

NARRATIVE: CASE EVENT DATE: 20220428
